FAERS Safety Report 13154972 (Version 3)
Quarter: 2017Q2

REPORT INFORMATION
  Report Type: Report from Study
  Country: US (occurrence: US)
  Receive Date: 20170126
  Receipt Date: 20170419
  Transmission Date: 20170830
  Serious: Yes (Hospitalization, Other)
  Sender: FDA-Public Use
  Company Number: US-GILEAD-2017-0254847

PATIENT
  Age: 47 Year
  Sex: Female

DRUGS (3)
  1. AMBRISENTAN [Suspect]
     Active Substance: AMBRISENTAN
     Indication: PRODUCT USED FOR UNKNOWN INDICATION
     Dosage: 10 MG, QD
     Route: 065
  2. REVATIO [Concomitant]
     Active Substance: SILDENAFIL CITRATE
  3. TRAZODONE [Suspect]
     Active Substance: TRAZODONE HYDROCHLORIDE
     Indication: PRODUCT USED FOR UNKNOWN INDICATION
     Dosage: UNK
     Route: 065

REACTIONS (8)
  - Platelet count decreased [Not Recovered/Not Resolved]
  - Contusion [Not Recovered/Not Resolved]
  - Ecchymosis [Not Recovered/Not Resolved]
  - Asthenia [Not Recovered/Not Resolved]
  - Head injury [Unknown]
  - Loss of consciousness [Unknown]
  - Concussion [Unknown]
  - Fatigue [Not Recovered/Not Resolved]

NARRATIVE: CASE EVENT DATE: 201703
